FAERS Safety Report 15558140 (Version 1)
Quarter: 2018Q4

REPORT INFORMATION
  Report Type: Spontaneous
  Country: BR (occurrence: BR)
  Receive Date: 20181027
  Receipt Date: 20181027
  Transmission Date: 20190205
  Serious: Yes (Hospitalization, Other)
  Sender: FDA-Public Use
  Company Number: BR-009507513-1810BRA011334

PATIENT
  Sex: Female

DRUGS (1)
  1. IMPLANON [Suspect]
     Active Substance: ETONOGESTREL
     Dosage: 68 MG
     Route: 059

REACTIONS (4)
  - Pregnancy with implant contraceptive [Unknown]
  - Weight decreased [Unknown]
  - Gastritis [Unknown]
  - Unintended pregnancy [Unknown]
